FAERS Safety Report 8967948 (Version 1)
Quarter: 2012Q4

REPORT INFORMATION
  Report Type: Spontaneous
  Country: AU (occurrence: None)
  Receive Date: 20121210
  Receipt Date: 20121210
  Transmission Date: 20130627
  Serious: Yes (Other)
  Sender: FDA-Public Use
  Company Number: B0850256A

PATIENT
  Age: 65 Year
  Sex: Female

DRUGS (1)
  1. MUPIROCIN [Suspect]
     Route: 045

REACTIONS (1)
  - Drug resistance [None]
